FAERS Safety Report 17279909 (Version 3)
Quarter: 2020Q3

REPORT INFORMATION
  Report Type: Report from Study
  Country: AT (occurrence: AT)
  Receive Date: 20200116
  Receipt Date: 20200322
  Transmission Date: 20201104
  Serious: Yes (Hospitalization)
  Sender: FDA-Public Use
  Company Number: AT-ALEXION PHARMACEUTICALS INC.-A202000275

PATIENT
  Age: 35 Year
  Sex: Female
  Weight: 65 kg

DRUGS (45)
  1. NEPRESOL                           /00007602/ [Concomitant]
     Active Substance: HYDRALAZINE HYDROCHLORIDE
     Indication: HYPERTENSION
     Dosage: 25 MG, PRN
     Route: 048
     Dates: start: 20171011
  2. BAYPRESS [Concomitant]
     Active Substance: NITRENDIPINE
     Indication: HYPERTENSION
     Dosage: 10 MG, PRN
     Route: 048
     Dates: start: 20180905
  3. DORMICUM                           /00036201/ [Concomitant]
     Active Substance: NITRAZEPAM
     Indication: ARTERIOVENOUS FISTULA OPERATION
  4. CALCIUM GLUCONATE. [Concomitant]
     Active Substance: CALCIUM GLUCONATE
     Indication: END STAGE RENAL DISEASE
     Dosage: 10 ML, SINGLE
     Route: 042
     Dates: start: 20191218, end: 20191218
  5. ELO?MEL [Concomitant]
     Active Substance: CALCIUM CHLORIDE\MAGNESIUM CHLORIDE\POTASSIUM CHLORIDE\SODIUM ACETATE\SODIUM CHLORIDE
     Indication: END STAGE RENAL DISEASE
     Dosage: 500 MG, SINGLE
     Route: 042
     Dates: start: 20191218, end: 20191218
  6. GLUCOSE [Concomitant]
     Active Substance: DEXTROSE
     Indication: END STAGE RENAL DISEASE
     Dosage: 20 ML, SINGLE
     Route: 042
     Dates: start: 20191218, end: 20191218
  7. RAVULIZUMAB. [Suspect]
     Active Substance: RAVULIZUMAB
     Dosage: 3300 MG, UNK
     Route: 042
     Dates: start: 20191126
  8. RAVULIZUMAB. [Suspect]
     Active Substance: RAVULIZUMAB
     Dosage: 3300 MG, UNK
     Route: 042
     Dates: start: 20200114
  9. LASIX [Concomitant]
     Active Substance: FUROSEMIDE
     Indication: OEDEMA
     Dosage: 40 MG, PRN
     Route: 048
     Dates: start: 20170626
  10. FENTANYL. [Concomitant]
     Active Substance: FENTANYL
     Indication: ARTERIOVENOUS FISTULA OPERATION
  11. CEFUROXIM                          /00454602/ [Concomitant]
     Active Substance: CEFUROXIME
     Indication: ARTERIOVENOUS FISTULA OPERATION
  12. RESONIUM [Concomitant]
     Active Substance: SODIUM POLYSTYRENE SULFONATE
     Indication: HYPERKALAEMIA
     Dosage: 14.9 G, PRN
     Route: 048
     Dates: start: 20170507
  13. RESONIUM [Concomitant]
     Active Substance: SODIUM POLYSTYRENE SULFONATE
     Indication: SHUNT OCCLUSION
     Dosage: 1 TABLESPOON, QD
     Route: 048
     Dates: start: 20190918
  14. ACTILYSE [Concomitant]
     Active Substance: ALTEPLASE
     Indication: HAEMODIALYSIS
     Dosage: 2.5 ML, PRN
     Route: 042
     Dates: start: 20180919
  15. AMPICILLIN+SULBACTAM [Concomitant]
     Active Substance: AMPICILLIN SODIUM\SULBACTAM SODIUM
     Indication: ANTIBIOTIC THERAPY
     Dosage: 6 G, QD
     Route: 042
     Dates: start: 20190927
  16. AMPICILLIN+SULBACTAM [Concomitant]
     Active Substance: AMPICILLIN SODIUM\SULBACTAM SODIUM
     Indication: SHUNT OCCLUSION
  17. NACL [Concomitant]
     Active Substance: SODIUM CHLORIDE
     Indication: HAEMODIALYSIS
     Dosage: 250 ML, PRN (0.9%)
     Route: 042
     Dates: start: 20180904
  18. CARVEDILOL. [Concomitant]
     Active Substance: CARVEDILOL
     Indication: HYPERTENSION
     Dosage: 25 MG, PRN
     Route: 048
     Dates: start: 2016
  19. PANTOLOC                           /01263204/ [Concomitant]
     Active Substance: PANTOPRAZOLE SODIUM
     Indication: GASTRITIS PROPHYLAXIS
     Dosage: 40 MG, PRN
     Route: 048
     Dates: start: 2017
  20. PROPOFOL. [Concomitant]
     Active Substance: PROPOFOL
     Indication: SHUNT INFECTION
     Dosage: 230 MG, SINGLE
     Route: 042
     Dates: start: 20200116, end: 20200116
  21. PARACETAMOL [Concomitant]
     Active Substance: ACETAMINOPHEN
     Indication: END STAGE RENAL DISEASE
     Dosage: 1000 MG, SINGLE
     Route: 042
     Dates: start: 20191218, end: 20191218
  22. RESONIUM [Concomitant]
     Active Substance: SODIUM POLYSTYRENE SULFONATE
     Indication: HAEMODIALYSIS
  23. LISINOPRIL. [Concomitant]
     Active Substance: LISINOPRIL
     Indication: HYPERTENSION
     Dosage: 5 MG, PRN
     Route: 048
     Dates: start: 20170830
  24. ARANESP [Concomitant]
     Active Substance: DARBEPOETIN ALFA
     Indication: ANAEMIA
     Dosage: 150 ?G, PRN
     Route: 058
     Dates: start: 20171127
  25. FOSRENOL [Concomitant]
     Active Substance: LANTHANUM CARBONATE
     Indication: DRUG THERAPY
     Dosage: 750 MG, TID
     Route: 048
     Dates: start: 20181213
  26. EBRANTIL                           /00631801/ [Concomitant]
     Active Substance: URAPIDIL
     Indication: HYPERTENSION
     Dosage: 60 MG, BID
     Route: 048
     Dates: start: 20190208
  27. DICLOBENE [Concomitant]
     Active Substance: DICLOFENAC SODIUM
     Indication: MUSCULOSKELETAL PAIN
     Dosage: 1 G, PRN
     Route: 061
     Dates: start: 20190531
  28. PROPOFOL. [Concomitant]
     Active Substance: PROPOFOL
     Indication: ARTERIOVENOUS FISTULA OPERATION
  29. PARACETAMOL [Concomitant]
     Active Substance: ACETAMINOPHEN
     Indication: ARTERIOVENOUS FISTULA OPERATION
  30. ELO?MEL [Concomitant]
     Active Substance: CALCIUM CHLORIDE\MAGNESIUM CHLORIDE\POTASSIUM CHLORIDE\SODIUM ACETATE\SODIUM CHLORIDE
     Indication: ARTERIOVENOUS FISTULA OPERATION
     Dosage: 1000 ML, SINGLE
     Route: 042
     Dates: start: 20200116, end: 20200116
  31. NOVALGIN                           /00169801/ [Concomitant]
     Active Substance: ACETAMINOPHEN\CAFFEINE\PROPYPHENAZONE
     Indication: HEADACHE
     Dosage: 500 MG, PRN
     Route: 048
     Dates: start: 20180905
  32. THYREX [Concomitant]
     Active Substance: LEVOTHYROXINE SODIUM
     Indication: HYPOTHYROIDISM
     Dosage: 50 ?G, QD
     Route: 048
     Dates: start: 2015
  33. FENTANYL. [Concomitant]
     Active Substance: FENTANYL
     Indication: SHUNT INFECTION
     Dosage: 300 ?G, SINGLE
     Route: 042
     Dates: start: 20200116, end: 20200116
  34. CEFUROXIM                          /00454602/ [Concomitant]
     Active Substance: CEFUROXIME
     Indication: END STAGE RENAL DISEASE
     Dosage: 1500 MG, SINGLE
     Route: 042
     Dates: start: 20191218, end: 20191218
  35. ELO?MEL [Concomitant]
     Active Substance: CALCIUM CHLORIDE\MAGNESIUM CHLORIDE\POTASSIUM CHLORIDE\SODIUM ACETATE\SODIUM CHLORIDE
     Indication: SHUNT INFECTION
  36. GLUCOSE [Concomitant]
     Active Substance: DEXTROSE
     Indication: ARTERIOVENOUS FISTULA OPERATION
  37. RAVULIZUMAB. [Suspect]
     Active Substance: RAVULIZUMAB
     Indication: ATYPICAL HAEMOLYTIC URAEMIC SYNDROME
     Dosage: 2700 MG, UNK
     Route: 042
     Dates: start: 20170517
  38. NACL [Concomitant]
     Active Substance: SODIUM CHLORIDE
     Dosage: (1 MOLARE) ML, PRN
     Route: 042
     Dates: start: 20180904
  39. MAGNOSOLV [Concomitant]
     Indication: HAEMODIALYSIS
     Dosage: 6.1 G, PRN
     Route: 048
     Dates: start: 20180904
  40. PARACETAMOL [Concomitant]
     Active Substance: ACETAMINOPHEN
     Indication: SHUNT INFECTION
     Dosage: 1000 MG, SINGLE
     Route: 042
     Dates: start: 20200116, end: 20200116
  41. CALCIUM GLUCONATE. [Concomitant]
     Active Substance: CALCIUM GLUCONATE
     Indication: ARTERIOVENOUS FISTULA OPERATION
  42. TRAMAL [Concomitant]
     Active Substance: TRAMADOL
     Indication: MUSCULOSKELETAL PAIN
     Dosage: 50 MG, TID
     Route: 048
     Dates: start: 20190531
  43. DORMICUM                           /00036201/ [Concomitant]
     Active Substance: NITRAZEPAM
     Indication: END STAGE RENAL DISEASE
     Dosage: 1 MG, SINGLE
     Route: 042
     Dates: start: 20191218, end: 20191218
  44. PROPOFOL. [Concomitant]
     Active Substance: PROPOFOL
     Indication: END STAGE RENAL DISEASE
     Dosage: 230 MG, SINGLE
     Route: 042
     Dates: start: 20191218, end: 20191218
  45. FENTANYL. [Concomitant]
     Active Substance: FENTANYL
     Indication: END STAGE RENAL DISEASE
     Dosage: 100 ?G, SINGLE
     Route: 042
     Dates: start: 20191218, end: 20191218

REACTIONS (1)
  - Post procedural complication [Recovered/Resolved]

NARRATIVE: CASE EVENT DATE: 20200101
